FAERS Safety Report 9471792 (Version 3)
Quarter: 2013Q4

REPORT INFORMATION
  Report Type: Spontaneous
  Country: US (occurrence: None)
  Receive Date: 20130819
  Receipt Date: 20131108
  Transmission Date: 20140711
  Serious: Yes (Other)
  Sender: FDA-Public Use
  Company Number: ACO_37871_2013

PATIENT
  Age: 67 Year
  Sex: Female

DRUGS (8)
  1. AMPYRA [Suspect]
     Indication: MULTIPLE SCLEROSIS
     Route: 048
     Dates: start: 20130610, end: 20130705
  2. BETASERON (ALBUMIN HUMAN, GLUCOSE, INTERFERON BETA) [Concomitant]
  3. PANTOPRAZOLE (PANTOPRAZOLE) [Concomitant]
  4. TRAMADOL (TRAMADOL) [Concomitant]
  5. HYDROCHLOROTHIAZIDE (HYDROCHLOROTHIAZIDE) [Concomitant]
  6. LISINOPRIL (LISINOPRIL) [Concomitant]
  7. PRAVASTATIN (PRAVASTATIN) [Concomitant]
  8. GABAPENTIN (GABAPENTIN) [Concomitant]

REACTIONS (7)
  - Oropharyngeal swelling [None]
  - Dysphagia [None]
  - Mastication disorder [None]
  - Hypoaesthesia [None]
  - Blood potassium decreased [None]
  - Blood chloride decreased [None]
  - Blood glucose increased [None]
